FAERS Safety Report 7332422-3 (Version None)
Quarter: 2011Q1

REPORT INFORMATION
  Report Type: 
  Country: None (occurrence: None)
  Receive Date: 20110304
  Receipt Date: 20110222
  Transmission Date: 20110831
  Serious: Yes (Other)
  Sender: FDA-Public Use
  Company Number: TW-ROCHE-761976

PATIENT
  Sex: Female

DRUGS (2)
  1. MIRCERA [Suspect]
     Route: 065
     Dates: start: 20110101
  2. RECORMON [Suspect]
     Dosage: QW
     Route: 058
     Dates: end: 20110101

REACTIONS (1)
  - THERAPEUTIC RESPONSE DECREASED [None]
